FAERS Safety Report 6145864-9 (Version None)
Quarter: 2009Q2

REPORT INFORMATION
  Report Type: 
  Country: None (occurrence: None)
  Receive Date: 20090403
  Receipt Date: 20090323
  Transmission Date: 20091009
  Serious: Yes (Hospitalization)
  Sender: FDA-Public Use
  Company Number: 1000003914

PATIENT
  Age: 75 Year
  Sex: Female

DRUGS (3)
  1. NEBIVOLOL HCL [Suspect]
     Indication: ESSENTIAL HYPERTENSION
     Dosage: 5 MG (5 MG), ORAL
     Route: 048
     Dates: start: 20080101, end: 20081230
  2. AMLODIPINE [Suspect]
     Indication: ESSENTIAL HYPERTENSION
     Dosage: 5 MG (5 MG)
     Dates: start: 20080101, end: 20081230
  3. TIMOLOL MALEATE [Concomitant]

REACTIONS (3)
  - DRUG INTERACTION [None]
  - PRESYNCOPE [None]
  - SINUS BRADYCARDIA [None]
